FAERS Safety Report 6811101-2 (Version None)
Quarter: 2010Q2

REPORT INFORMATION
  Report Type: 
  Country: None (occurrence: None)
  Receive Date: 20100630
  Receipt Date: 20090604
  Transmission Date: 20101027
  Serious: No
  Sender: FDA-Public Use
  Company Number: US-PFIZER INC-2009192147

PATIENT
  Sex: Female

DRUGS (1)
  1. NICOTROL [Suspect]
     Indication: TOBACCO ABUSE
     Dosage: 6-16 CARTRIDGES DAILY
     Dates: start: 20090327

REACTIONS (2)
  - MEDICATION ERROR [None]
  - NERVOUSNESS [None]
